FAERS Safety Report 11623713 (Version 1)
Quarter: 2015Q4

REPORT INFORMATION
  Report Type: Spontaneous
  Country: US (occurrence: US)
  Receive Date: 20151013
  Receipt Date: 20151013
  Transmission Date: 20160304
  Serious: No
  Sender: FDA-Public Use
  Company Number: US-JNJFOC-20150815283

PATIENT
  Age: 21 Year
  Sex: Male
  Weight: 90.72 kg

DRUGS (6)
  1. BIOTIN [Concomitant]
     Active Substance: BIOTIN
     Indication: PRODUCT USED FOR UNKNOWN INDICATION
     Route: 065
  2. CRAVE AWAY [Concomitant]
     Indication: WEIGHT DECREASED
     Dosage: 4 DAYS
     Route: 065
     Dates: start: 20150817
  3. NITRIC OXIDE. [Concomitant]
     Active Substance: NITRIC OXIDE
     Indication: WEIGHT DECREASED
     Dosage: 4 DAYS
     Route: 065
     Dates: start: 20150817
  4. MENS ROGAINE EXTRA STRENGTH [Suspect]
     Active Substance: MINOXIDIL
     Route: 061
  5. MENS ROGAINE EXTRA STRENGTH [Suspect]
     Active Substance: MINOXIDIL
     Indication: ALOPECIA
     Dosage: A LITTLE BIT ON MY FINGERS
     Route: 061
     Dates: start: 201507
  6. PROTEIN SUPPLEMENT [Concomitant]
     Active Substance: PROTEIN
     Indication: MUSCLE MASS
     Dosage: 7 YEARS
     Route: 065

REACTIONS (3)
  - Alopecia [Not Recovered/Not Resolved]
  - Hair growth abnormal [Not Recovered/Not Resolved]
  - Drug administered at inappropriate site [Not Recovered/Not Resolved]
